FAERS Safety Report 15764253 (Version 2)
Quarter: 2019Q1

REPORT INFORMATION
  Report Type: Spontaneous
  Country: US (occurrence: US)
  Receive Date: 20181227
  Receipt Date: 20190102
  Transmission Date: 20190417
  Serious: No
  Sender: FDA-Public Use
  Company Number: US-PCCINC-2017-PEL-003300

PATIENT

DRUGS (7)
  1. GABLOFEN [Suspect]
     Active Substance: BACLOFEN
     Dosage: 480 MICROGRAM, QD
     Route: 037
     Dates: start: 2016
  2. GABLOFEN [Suspect]
     Active Substance: BACLOFEN
     Dosage: 1560 MICROGRAM, QD
     Route: 037
     Dates: start: 2017
  3. GABLOFEN [Suspect]
     Active Substance: BACLOFEN
     Dosage: 1500 MICROGRAM, QD
     Route: 037
  4. BACLOFEN. [Concomitant]
     Active Substance: BACLOFEN
     Indication: MUSCLE SPASTICITY
     Dosage: UNK, AT BED TIME
     Route: 048
  5. GABLOFEN [Suspect]
     Active Substance: BACLOFEN
     Dosage: 200 OR 250 MICROGRAM
     Route: 037
  6. GABLOFEN [Suspect]
     Active Substance: BACLOFEN
     Dosage: 1460.9 MICROGRAM, QD
     Route: 037
  7. GABLOFEN [Suspect]
     Active Substance: BACLOFEN
     Indication: MUSCLE SPASTICITY
     Dosage: 50 MICROGRAM, SINGLE PRIOR TO IMPLANT
     Route: 037

REACTIONS (3)
  - Drug ineffective [Unknown]
  - Device connection issue [Recovered/Resolved]
  - Musculoskeletal disorder [Unknown]

NARRATIVE: CASE EVENT DATE: 20171101
